FAERS Safety Report 6779943-X (Version None)
Quarter: 2010Q2

REPORT INFORMATION
  Report Type: 
  Country: None (occurrence: None)
  Receive Date: 20100618
  Receipt Date: 20100615
  Transmission Date: 20101027
  Serious: Yes (Hospitalization)
  Sender: FDA-Public Use
  Company Number: TW-PFIZER INC-2006081869

PATIENT
  Age: 66 Year
  Sex: Female

DRUGS (4)
  1. SUNITINIB MALATE [Suspect]
     Indication: METASTATIC RENAL CELL CARCINOMA
     Dosage: 25 MG, 1X/DAY
     Route: 048
     Dates: start: 20060109, end: 20060628
  2. ADALAT [Concomitant]
     Dosage: UNK
     Route: 048
     Dates: start: 20060417
  3. IMOVANE [Concomitant]
     Dosage: UNK
     Route: 048
     Dates: start: 20060417
  4. TRITACE [Concomitant]
     Dosage: UNK
     Route: 048
     Dates: start: 20060417

REACTIONS (4)
  - HEPATITIS ACUTE [None]
  - JAUNDICE [None]
  - PYREXIA [None]
  - VOMITING [None]
